FAERS Safety Report 9280192 (Version 3)
Quarter: 2013Q3

REPORT INFORMATION
  Report Type: Spontaneous
  Country: DE (occurrence: DE)
  Receive Date: 20130509
  Receipt Date: 20130717
  Transmission Date: 20140515
  Serious: Yes (Life-Threatening, Hospitalization)
  Sender: FDA-Public Use
  Company Number: DE-ROCHE-1222512

PATIENT
  Age: 77 Year
  Sex: Female
  Weight: 70 kg

DRUGS (2)
  1. ZELBORAF [Suspect]
     Indication: LUNG NEOPLASM MALIGNANT
     Dosage: 2 TABLETS
     Route: 048
     Dates: start: 201212, end: 20121227
  2. EFEROX [Concomitant]
     Indication: THYROID DISORDER

REACTIONS (1)
  - Erythema multiforme [Recovered/Resolved]
